FAERS Safety Report 20719002 (Version 1)
Quarter: 2022Q2

REPORT INFORMATION
  Report Type: Spontaneous
  Country: CA (occurrence: CA)
  Receive Date: 20220418
  Receipt Date: 20220418
  Transmission Date: 20220721
  Serious: Yes (Hospitalization, Disabling)
  Sender: FDA-Public Use
  Company Number: None

PATIENT
  Age: 81 Year
  Sex: Male
  Weight: 65 kg

DRUGS (19)
  1. ATORVASTATIN [Suspect]
     Active Substance: ATORVASTATIN
     Indication: Arteriosclerosis
     Dosage: 1 EVERY 1 DAYS
     Route: 048
  2. DONEPEZIL [Concomitant]
     Active Substance: DONEPEZIL
  3. FLUZONE [Concomitant]
     Active Substance: INFLUENZA A VIRUS A/CALIFORNIA/7/2009 X-179A (H1N1) ANTIGEN (FORMALDEHYDE INACTIVATED)\INFLUENZA A V
     Dosage: STRENGTH: 0.5 ML, PREFILLED?SYRINGES, DOSAGE FORM: SUSPENSION INTRAMUSCULAR
  4. FUCIDIN [Concomitant]
     Active Substance: FUSIDATE SODIUM
     Dosage: STRENGTH: 2%
  5. GABAPENTIN [Concomitant]
     Active Substance: GABAPENTIN
  6. CHONDROITIN W/GLUCOSAMINE [Concomitant]
  7. HYDERM [Concomitant]
     Dosage: STRENGTH: 1%
  8. KETODERM [Concomitant]
     Dosage: STRENGTH: 2%
  9. METFORMIN [Concomitant]
     Active Substance: METFORMIN HYDROCHLORIDE
  10. GLICLAZIDE [Concomitant]
     Active Substance: GLICLAZIDE
  11. MIRABEGRON [Concomitant]
     Active Substance: MIRABEGRON
  12. NOVO-DOXYLIN [Concomitant]
     Dosage: STRENGTH: 100MG
  13. RAMIPRIL [Concomitant]
     Active Substance: RAMIPRIL
  14. SOLIFENACIN [Concomitant]
     Active Substance: SOLIFENACIN
  15. GLICLAZIDE [Concomitant]
     Active Substance: GLICLAZIDE
  16. SYNTHROID [Concomitant]
     Active Substance: LEVOTHYROXINE SODIUM
     Dosage: STRENGTH: 75MCG
  17. TAMSULOSIN [Concomitant]
     Active Substance: TAMSULOSIN
  18. VITAMIN B12 [Concomitant]
     Active Substance: CYANOCOBALAMIN
  19. VITAMIN D [Concomitant]
     Active Substance: VITAMIN D NOS

REACTIONS (4)
  - Myositis [Unknown]
  - Blood creatine phosphokinase increased [Unknown]
  - Fall [Unknown]
  - Muscular weakness [Unknown]
